FAERS Safety Report 22208343 (Version 1)
Quarter: 2023Q2

REPORT INFORMATION
  Report Type: Spontaneous
  Country: US (occurrence: US)
  Receive Date: 20230413
  Receipt Date: 20230413
  Transmission Date: 20230722
  Serious: No
  Sender: FDA-Public Use
  Company Number: US-INCYTE CORPORATION-2023IN003597

PATIENT

DRUGS (1)
  1. JAKAFI [Suspect]
     Active Substance: RUXOLITINIB
     Indication: Polycythaemia vera
     Dosage: 5MG, IN THE EVENING AND 10MG, IN THE MORNING
     Route: 048
     Dates: start: 202201

REACTIONS (2)
  - Amnesia [Unknown]
  - COVID-19 [Unknown]
